FAERS Safety Report 5336475-3 (Version None)
Quarter: 2007Q2

REPORT INFORMATION
  Report Type: 
  Country: None (occurrence: None)
  Receive Date: 20070524
  Receipt Date: 20070509
  Transmission Date: 20071010
  Serious: Yes (Death)
  Sender: FDA-Public Use
  Company Number: 2007S1004268

PATIENT
  Sex: Female

DRUGS (2)
  1. MERCAPTAMINE BITARTRATE (MERCAPTAMINE BITARTRATE) (150 MG) [Suspect]
     Indication: CYSTINOSIS
     Dosage: 150 MG; ; ORAL
     Route: 048
     Dates: start: 19960116
  2. IMMUNOSUPPRESSIVE AGENTS [Concomitant]

REACTIONS (6)
  - LYMPHOMA [None]
  - OVARIAN CANCER [None]
  - PERITONEAL DIALYSIS [None]
  - PERITONEAL DISORDER [None]
  - PERITONEAL HAEMORRHAGE [None]
  - SCLERODERMA [None]
